FAERS Safety Report 9076063 (Version 1)
Quarter: 2013Q1

REPORT INFORMATION
  Report Type: Spontaneous
  Country: US (occurrence: US)
  Receive Date: 20130129
  Receipt Date: 20130129
  Transmission Date: 20140127
  Serious: Yes (Other)
  Sender: FDA-Public Use
  Company Number: US-AMGEN-USASP2013002815

PATIENT
  Age: 62 Year
  Sex: Female
  Weight: 86.17 kg

DRUGS (17)
  1. ENBREL [Suspect]
     Indication: RHEUMATOID ARTHRITIS
     Dosage: 50 MG, QWK
     Dates: start: 20120220, end: 201206
  2. MVI [Concomitant]
     Dosage: UNK
  3. SULINDAC [Concomitant]
     Dosage: `200 MG, QD
     Route: 048
  4. TOPROL [Concomitant]
  5. FOLIC ACID [Concomitant]
     Dosage: 1 UNK, QD
     Route: 048
  6. LISINOPRIL [Concomitant]
  7. NIACIN [Concomitant]
  8. ZINC [Concomitant]
  9. ASA [Concomitant]
  10. PREDNISONE [Concomitant]
     Dosage: UNK UNK, PRN
  11. CRANBERRY                          /01512301/ [Concomitant]
  12. SYNTHROID [Concomitant]
  13. VITAMIN D /00107901/ [Concomitant]
  14. FISH OIL [Concomitant]
  15. TYLENOL /00020001/ [Concomitant]
     Dosage: UNK UNK, PRN
  16. ORENCIA [Concomitant]
  17. CALCIUM PLUS VITAMIN D [Concomitant]
     Dosage: UNK

REACTIONS (32)
  - Pituitary tumour benign [Unknown]
  - Tenosynovitis stenosans [Unknown]
  - Hyperglycaemia [Unknown]
  - Growth hormone deficiency [Unknown]
  - Anti-SS-A antibody positive [Unknown]
  - Blood 25-hydroxycholecalciferol decreased [Unknown]
  - Tendonitis [Unknown]
  - Muscle injury [Unknown]
  - Dyslipidaemia [Unknown]
  - Arthropathy [Unknown]
  - Osteoarthritis [Unknown]
  - Gait disturbance [Unknown]
  - Joint range of motion decreased [Unknown]
  - Activities of daily living impaired [Unknown]
  - Sleep apnoea syndrome [Unknown]
  - Anxiety [Unknown]
  - Nervousness [Unknown]
  - Depression [Unknown]
  - Feeling abnormal [Unknown]
  - Joint swelling [Unknown]
  - Arthralgia [Unknown]
  - Back pain [Unknown]
  - Neurological examination abnormal [Unknown]
  - Accommodation disorder [Unknown]
  - Blood pressure abnormal [Unknown]
  - Rheumatoid arthritis [Unknown]
  - Spinal osteoarthritis [Unknown]
  - Intervertebral disc degeneration [Unknown]
  - Bursitis [Unknown]
  - Lumbar radiculopathy [Unknown]
  - Sjogren^s syndrome [Unknown]
  - Antinuclear antibody positive [Unknown]
